FAERS Safety Report 4545449-1 (Version None)
Quarter: 2005Q1

REPORT INFORMATION
  Report Type: 
  Country: None (occurrence: None)
  Receive Date: 20050103
  Receipt Date: 20041220
  Transmission Date: 20050727
  Serious: Yes (Hospitalization, Other)
  Sender: FDA-Public Use
  Company Number: 2004116821

PATIENT
  Age: 77 Year
  Sex: Male
  Weight: 63.5036 kg

DRUGS (1)
  1. VIAGRA [Suspect]
     Indication: ERECTILE DYSFUNCTION
     Dosage: 50 MG (50  MG AS NEEDED), ORAL
     Route: 048
     Dates: start: 20010101

REACTIONS (1)
  - PNEUMONIA [None]
